FAERS Safety Report 10199537 (Version 1)
Quarter: 2014Q2

REPORT INFORMATION
  Report Type: Spontaneous
  Country: US (occurrence: None)
  Receive Date: 20140523
  Receipt Date: 20140523
  Transmission Date: 20141212
  Serious: Yes (Hospitalization, Disabling, Other)
  Sender: FDA-Public Use
  Company Number: None

PATIENT
  Age: 86 Year
  Sex: Female

DRUGS (1)
  1. EPIDURAL ANESTHESIA [Suspect]

REACTIONS (5)
  - Paralysis [None]
  - Asthenia [None]
  - Myocardial infarction [None]
  - Activities of daily living impaired [None]
  - Impaired driving ability [None]
